FAERS Safety Report 11536741 (Version 4)
Quarter: 2015Q4

REPORT INFORMATION
  Report Type: Spontaneous
  Country: JP (occurrence: JP)
  Receive Date: 20150922
  Receipt Date: 20151104
  Transmission Date: 20160304
  Serious: Yes (Hospitalization, Disabling)
  Sender: FDA-Public Use
  Company Number: JP-SA-2015SA142541

PATIENT
  Age: 73 Year
  Sex: Male
  Weight: 58.1 kg

DRUGS (7)
  1. GASTER [Suspect]
     Active Substance: FAMOTIDINE
     Route: 048
     Dates: start: 20150826
  2. PLAVIX [Suspect]
     Active Substance: CLOPIDOGREL BISULFATE
     Indication: ANGINA PECTORIS
     Route: 048
     Dates: start: 20150826
  3. BAYASPIRIN [Suspect]
     Active Substance: ASPIRIN
     Route: 048
     Dates: start: 20150622, end: 20150826
  4. MAINTATE [Suspect]
     Active Substance: BISOPROLOL FUMARATE
     Route: 048
     Dates: start: 20150622, end: 20150826
  5. MAGNESIUM OXIDE. [Suspect]
     Active Substance: MAGNESIUM OXIDE
     Route: 048
     Dates: start: 20150622
  6. AMLODIPINE [Suspect]
     Active Substance: AMLODIPINE BESYLATE
     Route: 048
     Dates: start: 20150622
  7. LANSOPRAZOLE. [Suspect]
     Active Substance: LANSOPRAZOLE
     Route: 048
     Dates: start: 20150622, end: 20150826

REACTIONS (1)
  - Tubulointerstitial nephritis [Unknown]

NARRATIVE: CASE EVENT DATE: 20150826
